FAERS Safety Report 23324790 (Version 2)
Quarter: 2024Q2

REPORT INFORMATION
  Report Type: Other
  Country: DE (occurrence: None)
  Receive Date: 20231221
  Receipt Date: 20240502
  Transmission Date: 20240716
  Serious: Yes (Other)
  Sender: FDA-Public Use
  Company Number: DE-ROCHE-2766582

PATIENT
  Age: 56 Year
  Sex: Female

DRUGS (14)
  1. OCREVUS [Suspect]
     Active Substance: OCRELIZUMAB
     Indication: Primary progressive multiple sclerosis
     Dosage: SUBSEQUENT DOSE: 15/FEB/2021
     Route: 042
     Dates: start: 20210201
  2. OCREVUS [Suspect]
     Active Substance: OCRELIZUMAB
     Route: 042
  3. OCREVUS [Suspect]
     Active Substance: OCRELIZUMAB
     Route: 042
     Dates: start: 20230814, end: 20230814
  4. COMIRNATY (TOZINAMERAN) [Suspect]
     Active Substance: TOZINAMERAN
     Indication: Product used for unknown indication
     Dosage: SUBSEQUENT DOSE ON :10/JUN/2021, 9/DEC/2021 (THIRD VACCINE)
     Route: 065
     Dates: start: 20210429
  5. NABIXIMOLS [Suspect]
     Active Substance: NABIXIMOLS
     Indication: Musculoskeletal chest pain
     Route: 065
  6. DRONABINOL [Suspect]
     Active Substance: DRONABINOL
     Indication: Musculoskeletal chest pain
     Route: 065
  7. BACLOFEN [Concomitant]
     Active Substance: BACLOFEN
  8. FLUTICASONE PROPIONATE\FORMOTEROL FUMARATE [Concomitant]
     Active Substance: FLUTICASONE PROPIONATE\FORMOTEROL FUMARATE
  9. METAMIZOLE [Concomitant]
     Active Substance: METAMIZOLE
  10. IBUPROFEN [Concomitant]
     Active Substance: IBUPROFEN
  11. TRAMADOL [Concomitant]
     Active Substance: TRAMADOL\TRAMADOL HYDROCHLORIDE
  12. PREDNISOLONE [Concomitant]
     Active Substance: PREDNISOLONE
  13. TILIDINE [Concomitant]
     Active Substance: TILIDINE
     Dosage: SLOW RELEASE TABLETS 100/8
  14. ATORVASTATIN [Concomitant]
     Active Substance: ATORVASTATIN

REACTIONS (11)
  - Dyspnoea [Recovered/Resolved]
  - Fatigue [Recovered/Resolved]
  - Abdominal pain lower [Recovered/Resolved]
  - Vaccination failure [Not Recovered/Not Resolved]
  - Muscular weakness [Not Recovered/Not Resolved]
  - Gait disturbance [Not Recovered/Not Resolved]
  - Musculoskeletal chest pain [Not Recovered/Not Resolved]
  - Nausea [Recovered/Resolved]
  - Nausea [Recovered/Resolved]
  - COVID-19 [Recovered/Resolved]
  - Pneumonia [Recovered/Resolved]

NARRATIVE: CASE EVENT DATE: 20210201
